FAERS Safety Report 9926317 (Version 1)
Quarter: 2014Q1

REPORT INFORMATION
  Report Type: Spontaneous
  Country: US (occurrence: US)
  Receive Date: 20140226
  Receipt Date: 20140226
  Transmission Date: 20141002
  Serious: No
  Sender: FDA-Public Use
  Company Number: US-AMGEN-USASP2013084284

PATIENT
  Age: 57 Year
  Sex: Male
  Weight: 104 kg

DRUGS (5)
  1. ENBREL [Suspect]
     Indication: PRODUCT USED FOR UNKNOWN INDICATION
     Dosage: 50 MG, QWK
     Route: 058
  2. PREDNISONE [Concomitant]
     Dosage: 1 MG, UNK
  3. MOTRIN IB [Concomitant]
     Dosage: 200 MG, UNK
  4. OXYCODONE [Concomitant]
     Dosage: 5 MG, UNK
  5. VITAMIN D                          /00107901/ [Concomitant]
     Dosage: 400 UNIT, UNK

REACTIONS (1)
  - Ankylosing spondylitis [Unknown]
